FAERS Safety Report 16359806 (Version 2)
Quarter: 2019Q2

REPORT INFORMATION
  Report Type: Spontaneous
  Country: CA (occurrence: CA)
  Receive Date: 20190528
  Receipt Date: 20190611
  Transmission Date: 20190711
  Serious: Yes (Other)
  Sender: FDA-Public Use
  Company Number: CA-GILEAD-2019-0410267

PATIENT
  Age: 62 Year
  Sex: Male

DRUGS (2)
  1. 222 [ACETYLSALICYLIC ACID;CAFFEINE CITRATE;CODEINE PHOSPHATE] [Concomitant]
  2. EPCLUSA [Suspect]
     Active Substance: SOFOSBUVIR\VELPATASVIR
     Indication: CHRONIC HEPATITIS C
     Dosage: UNK
     Route: 065

REACTIONS (2)
  - Genotype drug resistance test positive [Unknown]
  - Treatment failure [Not Recovered/Not Resolved]
